FAERS Safety Report 7824951-0 (Version None)
Quarter: 2011Q4

REPORT INFORMATION
  Report Type: 
  Country: None (occurrence: None)
  Receive Date: 20111019
  Receipt Date: 20110415
  Transmission Date: 20120403
  Serious: No
  Sender: FDA-Public Use
  Company Number: US-BRISTOL-MYERS SQUIBB COMPANY-15594476

PATIENT
  Sex: Female
  Weight: 68 kg

DRUGS (3)
  1. AVALIDE [Suspect]
     Dosage: 1 DF: 300/25MG
  2. CRESTOR [Concomitant]
     Indication: BLOOD CHOLESTEROL
  3. ATENOLOL [Concomitant]

REACTIONS (1)
  - HYPERTENSION [None]
